FAERS Safety Report 4824033-6 (Version None)
Quarter: 2005Q4

REPORT INFORMATION
  Report Type: 
  Country: None (occurrence: None)
  Receive Date: 20051108
  Receipt Date: 20051102
  Transmission Date: 20060501
  Serious: Yes (Hospitalization, Other)
  Sender: FDA-Public Use
  Company Number: HQWYE357402NOV05

PATIENT
  Age: 62 Year
  Sex: Female

DRUGS (2)
  1. PANTOPRAZOLE SODIUM [Suspect]
     Indication: ABDOMINAL DISCOMFORT
     Dosage: 20 MG 1X PER 1 DAY ORAL
     Route: 048
     Dates: start: 20050816, end: 20050929
  2. LEVOTHYROXINE SODIUM [Concomitant]

REACTIONS (1)
  - ERYTHROMELALGIA [None]
